FAERS Safety Report 4454755-0 (Version None)
Quarter: 2004Q3

REPORT INFORMATION
  Report Type: 
  Country: None (occurrence: None)
  Receive Date: 20040920
  Receipt Date: 20040920
  Transmission Date: 20050211
  Serious: Yes (Hospitalization)
  Sender: FDA-Public Use
  Company Number: None

PATIENT
  Age: 56 Year
  Sex: Male
  Weight: 133.8111 kg

DRUGS (11)
  1. LITHIUM CARBONATE [Suspect]
     Indication: SCHIZOAFFECTIVE DISORDER
     Dosage: 600 MG QAM AND 900 MG QHS
     Dates: start: 19960401
  2. LORATADINE [Concomitant]
  3. ATENOLOL [Concomitant]
  4. DOCUSATE (SENNA) [Concomitant]
  5. GEMFIBROZIL [Concomitant]
  6. LISINOPRIL [Concomitant]
  7. NYSTATIN [Concomitant]
  8. OLANZAPINE [Concomitant]
  9. LOVASTATIN [Concomitant]
  10. TOPIRIMATE [Concomitant]
  11. CLOMIPRAMINE HCL [Concomitant]

REACTIONS (3)
  - COGNITIVE DISORDER [None]
  - DRUG LEVEL ABOVE THERAPEUTIC [None]
  - DYSARTHRIA [None]
